FAERS Safety Report 13145571 (Version 1)
Quarter: 2017Q1

REPORT INFORMATION
  Report Type: Spontaneous
  Country: DE (occurrence: DE)
  Receive Date: 20170124
  Receipt Date: 20170124
  Transmission Date: 20170428
  Serious: Yes (Hospitalization)
  Sender: FDA-Public Use
  Company Number: DE-ALLERGAN-1702583US

PATIENT
  Age: 85 Year
  Sex: Male

DRUGS (10)
  1. MEMANTINE HCL - BP [Suspect]
     Active Substance: MEMANTINE
     Dosage: 20 MG, QD
     Route: 048
     Dates: start: 20160524, end: 20160529
  2. MEMANTINE HCL - BP [Suspect]
     Active Substance: MEMANTINE
     Dosage: 15 MG, QD
     Route: 048
     Dates: start: 20160517, end: 20160523
  3. SEROQUEL [Suspect]
     Active Substance: QUETIAPINE FUMARATE
     Dosage: 50 MG, QD
     Route: 048
     Dates: start: 20160507, end: 20160525
  4. RISPERDAL [Suspect]
     Active Substance: RISPERIDONE
     Dosage: 0.5 MG, QD
     Route: 048
     Dates: start: 20160525, end: 20160529
  5. TOREM [Concomitant]
     Active Substance: TORSEMIDE
     Indication: PRODUCT USED FOR UNKNOWN INDICATION
     Dosage: 10 MG, QD
     Route: 065
     Dates: start: 20160503, end: 20160522
  6. TOREM [Concomitant]
     Active Substance: TORSEMIDE
     Dosage: 15 MG, QD
     Route: 065
     Dates: start: 20160523, end: 20160529
  7. MEMANTINE HCL - BP [Suspect]
     Active Substance: MEMANTINE
     Indication: PRODUCT USED FOR UNKNOWN INDICATION
     Dosage: 5 MG, QD
     Route: 048
     Dates: start: 20160503, end: 20160509
  8. MEMANTINE HCL - BP [Suspect]
     Active Substance: MEMANTINE
     Dosage: 10 MG, QD
     Route: 048
     Dates: start: 20160510, end: 20160516
  9. SEROQUEL [Suspect]
     Active Substance: QUETIAPINE FUMARATE
     Indication: PRODUCT USED FOR UNKNOWN INDICATION
     Dosage: 25 MG, QD
     Route: 048
     Dates: start: 20160503, end: 20160506
  10. RISPERDAL [Suspect]
     Active Substance: RISPERIDONE
     Indication: PRODUCT USED FOR UNKNOWN INDICATION
     Dosage: 1 MG, QD
     Route: 048
     Dates: start: 20160503, end: 20160524

REACTIONS (1)
  - Oedema [Not Recovered/Not Resolved]

NARRATIVE: CASE EVENT DATE: 20160523
